FAERS Safety Report 21636366 (Version 2)
Quarter: 2022Q4

REPORT INFORMATION
  Report Type: Spontaneous
  Country: US (occurrence: US)
  Receive Date: 20221124
  Receipt Date: 20221219
  Transmission Date: 20230113
  Serious: No
  Sender: FDA-Public Use
  Company Number: US-TOLMAR, INC.-21US028796

PATIENT
  Sex: Male

DRUGS (4)
  1. FENSOLVI [Suspect]
     Active Substance: LEUPROLIDE ACETATE
     Indication: Gender dysphoria
     Dosage: 45 MILLIGRAM, Q 6 MONTH
     Route: 058
  2. FENSOLVI [Suspect]
     Active Substance: LEUPROLIDE ACETATE
     Dosage: 45 MILLIGRAM, Q 6 MONTH
     Route: 058
  3. FENSOLVI [Suspect]
     Active Substance: LEUPROLIDE ACETATE
     Indication: Mania
     Dosage: UNK
  4. FENSOLVI [Suspect]
     Active Substance: LEUPROLIDE ACETATE
     Indication: Psychotic symptom

REACTIONS (1)
  - Off label use [Not Recovered/Not Resolved]
